FAERS Safety Report 4696085-8 (Version None)
Quarter: 2005Q2

REPORT INFORMATION
  Report Type: 
  Country: None (occurrence: None)
  Receive Date: 20050621
  Receipt Date: 20050610
  Transmission Date: 20051028
  Serious: Yes (Other)
  Sender: FDA-Public Use
  Company Number: NL-ROCHE-407220

PATIENT
  Sex: Female

DRUGS (1)
  1. BONDRONAT [Suspect]
     Indication: OSTEOPOROSIS
     Route: 048

REACTIONS (3)
  - MIGRAINE [None]
  - SPEECH DISORDER [None]
  - THINKING ABNORMAL [None]
